FAERS Safety Report 9612060 (Version 2)
Quarter: 2014Q3

REPORT INFORMATION
  Report Type: Spontaneous
  Country: US (occurrence: US)
  Receive Date: 20131010
  Receipt Date: 20140714
  Transmission Date: 20150326
  Serious: No
  Sender: FDA-Public Use
  Company Number: US-ASTELLAS-2013US009275

PATIENT
  Age: 87 Year
  Sex: Male

DRUGS (1)
  1. MYRBETRIQ [Suspect]
     Active Substance: MIRABEGRON
     Indication: HYPERTONIC BLADDER
     Route: 048
     Dates: start: 20130819

REACTIONS (2)
  - Diarrhoea [Unknown]
  - Incontinence [Unknown]

NARRATIVE: CASE EVENT DATE: 20130824
